FAERS Safety Report 25795763 (Version 1)
Quarter: 2025Q3

REPORT INFORMATION
  Report Type: Spontaneous
  Country: US (occurrence: US)
  Receive Date: 20250912
  Receipt Date: 20250912
  Transmission Date: 20251021
  Serious: Yes (Hospitalization)
  Sender: MYLAN
  Company Number: US-MYLANLABS-2025M1077706

PATIENT
  Age: 65 Year
  Sex: Female

DRUGS (4)
  1. CLOZAPINE [Suspect]
     Active Substance: CLOZAPINE
     Indication: Schizophrenia
     Dosage: 200 MILLIGRAM, AM (RECEIVED IN THE MORNING)
  2. CLOZAPINE [Suspect]
     Active Substance: CLOZAPINE
     Dosage: 500 MILLIGRAM, HS (AT NIGHT)
  3. OLANZAPINE [Concomitant]
     Active Substance: OLANZAPINE
     Indication: Schizophrenia
  4. ZIPRASIDONE [Concomitant]
     Active Substance: ZIPRASIDONE
     Indication: Schizophrenia
     Dosage: 80 MILLIGRAM, BID

REACTIONS (6)
  - Gastrooesophageal reflux disease [Unknown]
  - Constipation [Unknown]
  - Hypotension [Unknown]
  - Small intestinal obstruction [Unknown]
  - Ileus paralytic [Unknown]
  - Gastrointestinal hypomotility [Unknown]
